FAERS Safety Report 17853667 (Version 2)
Quarter: 2020Q2

REPORT INFORMATION
  Report Type: Spontaneous
  Country: JO (occurrence: JO)
  Receive Date: 20200603
  Receipt Date: 20200605
  Transmission Date: 20200714
  Serious: Yes (Other)
  Sender: FDA-Public Use
  Company Number: JO-CELLTRION INC.-2020JO022706

PATIENT

DRUGS (3)
  1. REMSIMA [Suspect]
     Active Substance: INFLIXIMAB
     Dosage: 2ND DOSE
     Route: 065
  2. REMSIMA [Suspect]
     Active Substance: INFLIXIMAB
     Indication: PRODUCT USED FOR UNKNOWN INDICATION
     Dosage: 1ST DOSE, DURATION: 2-5 HOURS
     Route: 065
     Dates: start: 20200305
  3. REMSIMA [Suspect]
     Active Substance: INFLIXIMAB
     Dosage: 3RD DOSE
     Route: 065

REACTIONS (3)
  - Pruritus [Unknown]
  - Feeling hot [Unknown]
  - Headache [Unknown]

NARRATIVE: CASE EVENT DATE: 20200528
